FAERS Safety Report 4411976-0 (Version None)
Quarter: 2004Q3

REPORT INFORMATION
  Report Type: 
  Country: None (occurrence: None)
  Receive Date: 20040729
  Receipt Date: 20040729
  Transmission Date: 20050211
  Serious: Yes (Hospitalization)
  Sender: FDA-Public Use
  Company Number: None

PATIENT
  Age: 66 Year
  Sex: Female
  Weight: 80.7403 kg

DRUGS (2)
  1. DOXORUBICIN HCL [Suspect]
     Indication: BREAST CANCER
     Dosage: 104 MG Q 3 WEEKS X 4
     Dates: start: 20040630, end: 20040721
  2. CYCLOPHOSPHAMIDE [Suspect]
     Indication: BREAST CANCER
     Dosage: 1040 MG Q 3 WEEKS X 4
     Dates: start: 20040630, end: 20040721

REACTIONS (9)
  - CHEST DISCOMFORT [None]
  - CONFUSIONAL STATE [None]
  - DYSPNOEA [None]
  - ELECTROCARDIOGRAM T WAVE INVERSION [None]
  - LUNG INFILTRATION [None]
  - MICTURITION URGENCY [None]
  - NAUSEA [None]
  - PERICARDIAL EFFUSION [None]
  - PLEURAL EFFUSION [None]
